FAERS Safety Report 6340320-7 (Version None)
Quarter: 2009Q3

REPORT INFORMATION
  Report Type: 
  Country: None (occurrence: None)
  Receive Date: 20090904
  Receipt Date: 20071008
  Transmission Date: 20100115
  Serious: Yes (Other)
  Sender: FDA-Public Use
  Company Number: US-ASTRAZENECA-2006UW21763

PATIENT
  Age: 19901 Day
  Sex: Male
  Weight: 93.9 kg

DRUGS (15)
  1. SEROQUEL [Suspect]
     Indication: DEPRESSION
     Route: 048
     Dates: start: 20040101, end: 20070930
  2. SEROQUEL [Suspect]
     Indication: ANXIETY
     Route: 048
     Dates: start: 20040101, end: 20070930
  3. SEROQUEL [Suspect]
     Dosage: 25-100MG
     Route: 048
     Dates: start: 20060930
  4. SEROQUEL [Suspect]
     Dosage: 25-100MG
     Route: 048
     Dates: start: 20060930
  5. ZOLOFT [Concomitant]
     Dates: start: 19960101, end: 20010101
  6. ZOLOFT [Concomitant]
     Dates: start: 20010911
  7. PLAVIX [Concomitant]
     Dates: start: 20060930
  8. ZOCOR [Concomitant]
     Route: 048
     Dates: start: 20060930
  9. VASOTEC [Concomitant]
     Dates: start: 19960202
  10. CARDURA [Concomitant]
     Dates: start: 20060930
  11. NORMODYNE [Concomitant]
     Dosage: 200-800MG
     Dates: start: 19960202
  12. LASIX [Concomitant]
     Dates: start: 19960202
  13. HYTRIN [Concomitant]
     Dates: start: 19960202
  14. PROCARDIA XL [Concomitant]
     Dates: start: 19960202
  15. VALIUM [Concomitant]
     Dosage: 5MG AS NEEDED
     Dates: start: 19960202

REACTIONS (2)
  - CORONARY ARTERIAL STENT INSERTION [None]
  - DIABETES MELLITUS [None]
